FAERS Safety Report 6783486-7 (Version None)
Quarter: 2010Q2

REPORT INFORMATION
  Report Type: 
  Country: None (occurrence: None)
  Receive Date: 20100622
  Receipt Date: 20100609
  Transmission Date: 20101027
  Serious: Yes (Hospitalization)
  Sender: FDA-Public Use
  Company Number: FR-ASTRAZENECA-2010SE27412

PATIENT
  Age: 13404 Day
  Sex: Female

DRUGS (16)
  1. NAROPIN [Suspect]
     Route: 050
     Dates: start: 20091217, end: 20091217
  2. PROPOFOL [Suspect]
     Route: 042
     Dates: start: 20091217, end: 20091217
  3. ATRACURIUM HOSPIRA [Suspect]
     Route: 042
     Dates: start: 20091217, end: 20091217
  4. ULTIVA [Suspect]
     Route: 042
     Dates: start: 20091217, end: 20091217
  5. NORMACOL [Suspect]
     Route: 054
     Dates: start: 20091216, end: 20091216
  6. BETADINE [Suspect]
     Dosage: TWO SHOWERS WITH BETADINE SCRUB 4%;PREOPERATIVE LOCAL ANTISEPSIS W BETADINE DERMAL 10% SKIN-VAGINAL
     Route: 003
     Dates: start: 20091216, end: 20091217
  7. DROPERIDOL [Suspect]
     Route: 042
     Dates: start: 20091217, end: 20091217
  8. KETAMINE HCL [Suspect]
     Route: 042
     Dates: start: 20091217, end: 20091217
  9. AUGMENTIN '125' [Suspect]
     Dosage: 3 G + 300 MG.
     Route: 042
     Dates: start: 20091217, end: 20091217
  10. MORPHINE [Suspect]
     Route: 042
     Dates: start: 20091217, end: 20091217
  11. KALINOX [Suspect]
     Route: 055
     Dates: start: 20091217, end: 20091217
  12. NEURONTIN [Concomitant]
     Dates: start: 20091216, end: 20091217
  13. LOVENOX [Concomitant]
     Dates: start: 20091216, end: 20091221
  14. NITRIC OXIDE [Concomitant]
     Dates: start: 20091217, end: 20091217
  15. ACUPAN [Concomitant]
     Dates: start: 20091217, end: 20091217
  16. PERFALGAN [Concomitant]
     Dates: start: 20091217, end: 20091217

REACTIONS (2)
  - LYMPHOPENIA [None]
  - RENAL FAILURE ACUTE [None]
